FAERS Safety Report 21568698 (Version 1)
Quarter: 2022Q4

REPORT INFORMATION
  Report Type: Report from Study
  Country: CA (occurrence: CA)
  Receive Date: 20221108
  Receipt Date: 20221108
  Transmission Date: 20230112
  Serious: Yes (Other)
  Sender: FDA-Public Use
  Company Number: CA-BRISTOL-MYERS SQUIBB COMPANY-2022-133540

PATIENT
  Age: 80 Year
  Sex: Female

DRUGS (3)
  1. ORENCIA [Suspect]
     Active Substance: ABATACEPT
     Indication: Rheumatoid arthritis
     Dosage: WEEKLY
     Route: 058
     Dates: start: 20140502
  2. METHOTREXATE [Concomitant]
     Active Substance: METHOTREXATE
     Indication: Product used for unknown indication
  3. FOLIC ACID [Concomitant]
     Active Substance: FOLIC ACID
     Indication: Product used for unknown indication

REACTIONS (13)
  - Aortic arteriosclerosis [Unknown]
  - Cardiomegaly [Unknown]
  - Pleural disorder [Unknown]
  - Pericardial effusion [Unknown]
  - Atelectasis [Unknown]
  - Bone demineralisation [Unknown]
  - Rib fracture [Unknown]
  - Pain in extremity [Unknown]
  - Fall [Unknown]
  - Musculoskeletal stiffness [Unknown]
  - Asthma [Unknown]
  - Dyspnoea [Unknown]
  - Oedema peripheral [Unknown]

NARRATIVE: CASE EVENT DATE: 20220101
